FAERS Safety Report 9218539 (Version 1)
Quarter: 2013Q2

REPORT INFORMATION
  Report Type: Spontaneous
  Country: US (occurrence: None)
  Receive Date: 20130405
  Receipt Date: 20130405
  Transmission Date: 20140414
  Serious: Yes (Other)
  Sender: FDA-Public Use
  Company Number: None

PATIENT
  Age: 59 Year
  Sex: Male

DRUGS (1)
  1. MORPHINE [Suspect]
     Dates: start: 20121105

REACTIONS (3)
  - Dystonia [None]
  - Grimacing [None]
  - Grimacing [None]
